FAERS Safety Report 18096021 (Version 3)
Quarter: 2021Q2

REPORT INFORMATION
  Report Type: Spontaneous
  Country: US (occurrence: US)
  Receive Date: 20200730
  Receipt Date: 20210629
  Transmission Date: 20210717
  Serious: Yes (Other)
  Sender: FDA-Public Use
  Company Number: US-TEVA-2020-US-1806010

PATIENT
  Age: 65 Year
  Sex: Female

DRUGS (10)
  1. VORICONAZOLE. [Suspect]
     Active Substance: VORICONAZOLE
     Indication: OSTEOMYELITIS
     Dosage: 400 MILLIGRAM DAILY; LATER INCREASED TO 400MG DUE TO SUB?THERAPEUTIC LEVELS
     Route: 048
  2. LIPOSOMAL AMPHOTERICIN?B [Suspect]
     Active Substance: AMPHOTERICIN B
     Indication: ASPERGILLUS INFECTION
  3. VORICONAZOLE. [Suspect]
     Active Substance: VORICONAZOLE
     Indication: OSTEOMYELITIS
     Dosage: UNKNOWN LOADING DOSE
     Route: 042
  4. ISAVUCONAZOLE [Suspect]
     Active Substance: ISAVUCONAZOLE
     Indication: OSTEOMYELITIS
     Dosage: 1116 MILLIGRAM DAILY; FIRST 4 DOSES, FOLLOWED BY DAILY DOSES
     Route: 048
  5. LIPOSOMAL AMPHOTERICIN?B [Suspect]
     Active Substance: AMPHOTERICIN B
     Indication: OSTEOMYELITIS
     Dosage: 400 MILLIGRAM DAILY;
     Route: 042
  6. VORICONAZOLE. [Suspect]
     Active Substance: VORICONAZOLE
     Indication: ASPERGILLUS INFECTION
     Dosage: 800 MILLIGRAM DAILY;
     Route: 048
  7. ISAVUCONAZOLE [Suspect]
     Active Substance: ISAVUCONAZOLE
     Indication: ASPERGILLUS INFECTION
     Dosage: 372 MILLIGRAM DAILY;
     Route: 048
  8. MICAFUNGIN. [Concomitant]
     Active Substance: MICAFUNGIN SODIUM
     Indication: OSTEOMYELITIS
     Dosage: 100 MILLIGRAM DAILY;
     Route: 042
  9. MICAFUNGIN. [Concomitant]
     Active Substance: MICAFUNGIN SODIUM
     Indication: ASPERGILLUS INFECTION
  10. VORICONAZOLE. [Suspect]
     Active Substance: VORICONAZOLE
     Indication: ASPERGILLUS INFECTION
     Dosage: 800 MILLIGRAM DAILY; GIVEN WITH AMPHOTERICIN B LIPOSOMAL
     Route: 042

REACTIONS (6)
  - Metabolic encephalopathy [Unknown]
  - Decreased appetite [Unknown]
  - Malnutrition [Unknown]
  - Alopecia [Unknown]
  - Acute kidney injury [Unknown]
  - Nausea [Unknown]
